FAERS Safety Report 12984423 (Version 1)
Quarter: 2016Q4

REPORT INFORMATION
  Report Type: Spontaneous
  Country: AU (occurrence: AU)
  Receive Date: 20161129
  Receipt Date: 20161129
  Transmission Date: 20170207
  Serious: Yes (Other)
  Sender: FDA-Public Use
  Company Number: AU-ABBVIE-16P-008-1794075-00

PATIENT
  Age: 62 Year
  Sex: Male

DRUGS (2)
  1. PARACETAMOL [Suspect]
     Active Substance: ACETAMINOPHEN
     Indication: PRODUCT USED FOR UNKNOWN INDICATION
     Dosage: TWICE A DAY
     Route: 065
  2. VALPROATE SODIUM. [Suspect]
     Active Substance: VALPROATE SODIUM
     Indication: PRODUCT USED FOR UNKNOWN INDICATION
     Dosage: TWICE A DAY
     Route: 065

REACTIONS (11)
  - Tachypnoea [Unknown]
  - Neutrophilia [Unknown]
  - Troponin increased [Unknown]
  - Pneumonia [Recovering/Resolving]
  - Tachycardia [Unknown]
  - Pyrexia [Unknown]
  - C-reactive protein increased [Unknown]
  - Delirium [Unknown]
  - Malaise [Unknown]
  - Leukocytosis [Unknown]
  - Eosinophilia [Unknown]
